FAERS Safety Report 7541027-0 (Version None)
Quarter: 2011Q2

REPORT INFORMATION
  Report Type: 
  Country: None (occurrence: None)
  Receive Date: 20110610
  Receipt Date: 20100614
  Transmission Date: 20111010
  Serious: No
  Sender: FDA-Public Use
  Company Number: A0866340A

PATIENT

DRUGS (1)
  1. ALTABAX [Suspect]
     Route: 061

REACTIONS (2)
  - SWELLING [None]
  - HYPERSENSITIVITY [None]
